FAERS Safety Report 7993277-7 (Version None)
Quarter: 2011Q4

REPORT INFORMATION
  Report Type: 
  Country: None (occurrence: None)
  Receive Date: 20111219
  Receipt Date: 20110907
  Transmission Date: 20120403
  Serious: No
  Sender: FDA-Public Use
  Company Number: US-ASTRAZENECA-2011SE53891

PATIENT
  Age: 50 Year
  Sex: Female
  Weight: 77.6 kg

DRUGS (8)
  1. SYNTHROID [Concomitant]
     Indication: THYROID DISORDER
  2. OMEPRAZOLE [Concomitant]
     Indication: GASTRIC DISORDER
  3. CRESTOR [Suspect]
     Route: 048
  4. ASPIRIN [Concomitant]
  5. PLAVIX [Concomitant]
  6. CO-ENZYMES [Concomitant]
     Indication: ADVERSE DRUG REACTION
  7. CRESTOR [Suspect]
     Indication: BLOOD CHOLESTEROL INCREASED
     Route: 048
     Dates: start: 20100901
  8. SIMVASTATIN [Concomitant]

REACTIONS (5)
  - AMNESIA [None]
  - DRUG PRESCRIBING ERROR [None]
  - VISION BLURRED [None]
  - ECZEMA [None]
  - WRONG TECHNIQUE IN DRUG USAGE PROCESS [None]
